FAERS Safety Report 10186828 (Version 1)
Quarter: 2014Q2

REPORT INFORMATION
  Report Type: Spontaneous
  Country: US (occurrence: US)
  Receive Date: 20140522
  Receipt Date: 20140522
  Transmission Date: 20141212
  Serious: No
  Sender: FDA-Public Use
  Company Number: US-009507513-1405USA005330

PATIENT
  Sex: Male

DRUGS (1)
  1. INTRONA [Suspect]
     Dosage: DOSE/FREQUENCY:20 MILLION UNITS/THREE TIMES A WEEK
     Route: 058
     Dates: end: 201404

REACTIONS (1)
  - Drug intolerance [Unknown]
